FAERS Safety Report 6458819-1 (Version None)
Quarter: 2009Q4

REPORT INFORMATION
  Report Type: 
  Country: None (occurrence: None)
  Receive Date: 20091127
  Receipt Date: 20091117
  Transmission Date: 20100525
  Serious: Yes (Other)
  Sender: FDA-Public Use
  Company Number: US-ROCHE-670944

PATIENT
  Sex: Male

DRUGS (6)
  1. ALEVE [Suspect]
     Indication: INFLAMMATION
     Route: 048
     Dates: start: 20081001, end: 20081001
  2. ALEVE [Suspect]
     Route: 048
     Dates: start: 20090601, end: 20090801
  3. NORVASC [Concomitant]
  4. LIPITOR [Concomitant]
  5. ASPIRIN [Concomitant]
     Route: 048
     Dates: end: 20091001
  6. ALLOPURINOL [Concomitant]

REACTIONS (3)
  - HAEMORRHOIDAL HAEMORRHAGE [None]
  - MITOCHONDRIAL TOXICITY [None]
  - PROSTATIC SPECIFIC ANTIGEN INCREASED [None]
